FAERS Safety Report 6185781-1 (Version None)
Quarter: 2009Q2

REPORT INFORMATION
  Report Type: 
  Country: None (occurrence: None)
  Receive Date: 20090507
  Receipt Date: 20090423
  Transmission Date: 20091009
  Serious: Yes (Other)
  Sender: FDA-Public Use
  Company Number: 20090131 /

PATIENT
  Age: 59 Year
  Sex: Female
  Weight: 70.3075 kg

DRUGS (1)
  1. VENOFER [Suspect]
     Indication: IRON DEFICIENCY ANAEMIA
     Dosage: SEE IMAGE
     Route: 042
     Dates: start: 20090417, end: 20090419

REACTIONS (1)
  - PHLEBITIS [None]
